FAERS Safety Report 21081558 (Version 1)
Quarter: 2022Q3

REPORT INFORMATION
  Report Type: Spontaneous
  Country: US (occurrence: None)
  Receive Date: 20220713
  Receipt Date: 20220713
  Transmission Date: 20221027
  Serious: Yes (Hospitalization)
  Sender: FDA-Public Use
  Company Number: None

PATIENT
  Sex: Male

DRUGS (1)
  1. AMIODARONE HYDROCHLORIDE [Suspect]
     Active Substance: AMIODARONE HYDROCHLORIDE
     Indication: Ventricular extrasystoles
     Dosage: OTHER QUANTITY : 1 TABLET(S);?
     Route: 048

REACTIONS (4)
  - Product quality issue [None]
  - Cough [None]
  - Chest pain [None]
  - Malaise [None]

NARRATIVE: CASE EVENT DATE: 20220713
